FAERS Safety Report 4280834-7 (Version None)
Quarter: 2004Q1

REPORT INFORMATION
  Report Type: 
  Country: None (occurrence: None)
  Receive Date: 20040128
  Receipt Date: 20040128
  Transmission Date: 20041129
  Serious: Yes (Hospitalization)
  Sender: FDA-Public Use
  Company Number: None

PATIENT
  Sex: Female

DRUGS (4)
  1. DOCETAXEL AVENTIS [Suspect]
     Indication: MALIGNANT NEOPLASM PROGRESSION
     Dosage: 75MG/M2 EVEVERY 3 WE INTRAVENOUS
     Route: 042
     Dates: start: 20030328, end: 20030604
  2. DOCETAXEL AVENTIS [Suspect]
     Indication: NON-SMALL CELL LUNG CANCER
     Dosage: 75MG/M2 EVEVERY 3 WE INTRAVENOUS
     Route: 042
     Dates: start: 20030328, end: 20030604
  3. CELEBREX [Suspect]
     Indication: MALIGNANT NEOPLASM PROGRESSION
     Dosage: 400 M G BID ORAL
     Route: 048
     Dates: start: 20030328, end: 20030604
  4. CELEBREX [Suspect]
     Indication: NON-SMALL CELL LUNG CANCER
     Dosage: 400 M G BID ORAL
     Route: 048
     Dates: start: 20030328, end: 20030604

REACTIONS (3)
  - COUGH [None]
  - DISEASE PROGRESSION [None]
  - PNEUMONIA [None]
